FAERS Safety Report 11212107 (Version 1)
Quarter: 2015Q2

REPORT INFORMATION
  Report Type: Spontaneous
  Country: US (occurrence: US)
  Receive Date: 20150623
  Receipt Date: 20150623
  Transmission Date: 20150821
  Serious: Yes (Hospitalization, Other)
  Sender: FDA-Public Use
  Company Number: PHHY2015US071589

PATIENT
  Age: 9 Year
  Sex: Female

DRUGS (1)
  1. SULFAMETHOXAZOLE AND TRIMETHOPRIM [Suspect]
     Active Substance: SULFAMETHOXAZOLE\TRIMETHOPRIM
     Indication: PRODUCT USED FOR UNKNOWN INDICATION
     Route: 065

REACTIONS (7)
  - Eosinophilic pneumonia [Recovered/Resolved]
  - Rash generalised [Unknown]
  - Pulmonary embolism [Recovering/Resolving]
  - Hypersensitivity [Recovered/Resolved]
  - Pyrexia [Unknown]
  - Cough [Unknown]
  - Otitis media [Unknown]
